FAERS Safety Report 4399190-9 (Version None)
Quarter: 2004Q2

REPORT INFORMATION
  Report Type: 
  Country: None (occurrence: None)
  Receive Date: 20040621
  Receipt Date: 20031024
  Transmission Date: 20050107
  Serious: Yes (Hospitalization, Other)
  Sender: FDA-Public Use
  Company Number: USA-2003-0008819

PATIENT
  Age: 29 Year
  Sex: Male
  Weight: 83.9 kg

DRUGS (13)
  1. OXYCONTIN [Suspect]
     Indication: PAIN
     Dosage: SEE TEXT
  2. HEROIN (DIAMORPHINE) [Suspect]
  3. MARIJUANA (CANNABIS) [Suspect]
  4. OXYCODONE HCL [Suspect]
     Dosage: 15 MG, ORAL
     Route: 048
  5. LORCET-HD [Suspect]
  6. CODEINE (CODEINE) [Suspect]
     Indication: PAIN
  7. NEURONTIN [Concomitant]
  8. FLEXERIL [Concomitant]
  9. ZOLOFT [Concomitant]
  10. EFFEXOR [Concomitant]
  11. MOTRIN [Concomitant]
  12. PERCOCET [Concomitant]
  13. MEDROL [Concomitant]

REACTIONS (35)
  - ABDOMINAL PAIN UPPER [None]
  - AGITATION [None]
  - ASTHENIA [None]
  - COLD SWEAT [None]
  - CONFUSIONAL STATE [None]
  - DECREASED APPETITE [None]
  - DEPRESSION [None]
  - DIARRHOEA [None]
  - DRUG ABUSER [None]
  - DRUG DEPENDENCE [None]
  - DRUG TOLERANCE [None]
  - DRUG WITHDRAWAL CONVULSIONS [None]
  - DRUG WITHDRAWAL SYNDROME [None]
  - FATIGUE [None]
  - GASTROENTERITIS [None]
  - HALLUCINATION [None]
  - HEADACHE [None]
  - HYPERHIDROSIS [None]
  - ILL-DEFINED DISORDER [None]
  - INSOMNIA [None]
  - IRRITABILITY [None]
  - MOOD SWINGS [None]
  - MUSCLE SPASMS [None]
  - MYALGIA [None]
  - NAUSEA [None]
  - NERVOUSNESS [None]
  - PAIN [None]
  - PAIN EXACERBATED [None]
  - PARANOIA [None]
  - POLYSUBSTANCE ABUSE [None]
  - SUICIDAL IDEATION [None]
  - TEMPERATURE REGULATION DISORDER [None]
  - TREMOR [None]
  - VOMITING [None]
  - WEIGHT DECREASED [None]
